FAERS Safety Report 5712045-X (Version None)
Quarter: 2008Q2

REPORT INFORMATION
  Report Type: 
  Country: None (occurrence: None)
  Receive Date: 20080417
  Receipt Date: 20080401
  Transmission Date: 20081010
  Serious: Yes (Hospitalization)
  Sender: FDA-Public Use
  Company Number: 080411-0000265

PATIENT
  Age: 79 Year
  Sex: Male

DRUGS (12)
  1. CLORAZEPATE DIPOTASSIUM [Suspect]
     Indication: DRUG USE FOR UNKNOWN INDICATION
     Dosage: IV
     Route: 042
     Dates: start: 20071215, end: 20071215
  2. PANTOPRAZOLE SODIUM [Suspect]
     Indication: DRUG USE FOR UNKNOWN INDICATION
     Dosage: 40 MG;QD;IV
     Route: 042
     Dates: start: 20071214, end: 20071216
  3. ACTIVASE [Suspect]
     Indication: THROMBOLYSIS
     Dosage: 6.5 MG;1X;IV; 61 MG;1X;IV
     Route: 042
     Dates: start: 20071214, end: 20071214
  4. ACTIVASE [Suspect]
     Indication: THROMBOLYSIS
     Dosage: 6.5 MG;1X;IV; 61 MG;1X;IV
     Route: 042
     Dates: start: 20071214, end: 20071214
  5. NICARDIPINE HYDROCHLORIDE [Suspect]
     Indication: DRUG USE FOR UNKNOWN INDICATION
     Dosage: 1 MG;1X;IV
     Route: 042
     Dates: start: 20071214, end: 20071215
  6. BISOPROLOL FUMARATE [Concomitant]
  7. METFORMIN HCL [Concomitant]
  8. ALLOPURINOL [Concomitant]
  9. DIOVAN HCT [Concomitant]
  10. ATORVASTATIN [Concomitant]
  11. OMEPRAZOLE [Concomitant]
  12. CHINESE PLANTS NOS [Concomitant]

REACTIONS (6)
  - APPLICATION SITE REACTION [None]
  - CYANOSIS [None]
  - DERMATITIS BULLOUS [None]
  - FIBRIN D DIMER INCREASED [None]
  - SKIN BACTERIAL INFECTION [None]
  - STAPHYLOCOCCAL INFECTION [None]
